FAERS Safety Report 10173019 (Version 2)
Quarter: 2014Q2

REPORT INFORMATION
  Report Type: Report from Study
  Country: AT (occurrence: AT)
  Receive Date: 20140515
  Receipt Date: 20140515
  Transmission Date: 20141212
  Serious: Yes (Death, Hospitalization)
  Sender: FDA-Public Use
  Company Number: PHHY2014AT040691

PATIENT
  Sex: Female
  Weight: 55 kg

DRUGS (3)
  1. EVEROLIMUS [Suspect]
     Indication: BREAST CANCER
     Dosage: 10 MG
     Route: 048
     Dates: start: 20130917, end: 20131126
  2. EXEMESTAN [Concomitant]
     Indication: BREAST CANCER
     Dosage: 25 MG
     Dates: start: 20130917
  3. HALAVEN [Concomitant]
     Dates: start: 20131127

REACTIONS (3)
  - Mesothelioma [Fatal]
  - Multi-organ failure [Fatal]
  - General physical health deterioration [Fatal]
